FAERS Safety Report 4354635-5 (Version None)
Quarter: 2004Q2

REPORT INFORMATION
  Report Type: 
  Country: None (occurrence: None)
  Receive Date: 20040506
  Receipt Date: 20040506
  Transmission Date: 20050107
  Serious: Yes (Life-Threatening, Hospitalization)
  Sender: FDA-Public Use
  Company Number: None

PATIENT
  Sex: Female
  Weight: 90.7 kg

DRUGS (28)
  1. SEROQUEL [Suspect]
     Indication: AGITATION
     Dosage: 100 MG PO TID
     Route: 048
     Dates: start: 20010101, end: 20040418
  2. SEROQUEL [Suspect]
     Indication: DEPRESSION
     Dosage: 100 MG PO TID
     Route: 048
     Dates: start: 20010101, end: 20040418
  3. HALDOL [Suspect]
     Indication: AGITATION
     Dosage: 2 MG PO X 1, 2 MG IM X 1
     Route: 048
     Dates: start: 20040419
  4. NEURONTIN [Concomitant]
  5. ALBUTEROL [Concomitant]
  6. VITAMIN C [Concomitant]
  7. ASPIRIN [Concomitant]
  8. ATIVAN [Concomitant]
  9. AVELOX [Concomitant]
  10. COLACE [Concomitant]
  11. DURAGESIC [Concomitant]
  12. LIDADERM PATCH [Concomitant]
  13. MYTICON [Concomitant]
  14. CALCIUM [Concomitant]
  15. PREVACID [Concomitant]
  16. SYNTHROID [Concomitant]
  17. M.V.I. [Concomitant]
  18. TOPROL-XL [Concomitant]
  19. ULTRAM [Concomitant]
  20. A + D [Concomitant]
  21. ZOCOR [Concomitant]
  22. AMBIEN [Concomitant]
  23. CATAPRES [Concomitant]
  24. IMODIUM [Concomitant]
  25. MINALAX [Concomitant]
  26. MOM [Concomitant]
  27. SENOKOT [Concomitant]
  28. TYLENOL (CAPLET) [Concomitant]

REACTIONS (1)
  - NEUROLEPTIC MALIGNANT SYNDROME [None]
